FAERS Safety Report 9500502 (Version 1)
Quarter: 2013Q3

REPORT INFORMATION
  Report Type: Spontaneous
  Country: US (occurrence: None)
  Receive Date: 20130904
  Receipt Date: 20130904
  Transmission Date: 20140515
  Serious: Yes (Hospitalization, Disabling)
  Sender: FDA-Public Use
  Company Number: None

PATIENT
  Age: 79 Year
  Sex: Female

DRUGS (8)
  1. FASLODEX [Suspect]
     Indication: METASTATIC NEOPLASM
     Dosage: 5 CC BUTTOCK EVERY 3 WEEKS, INJECTION
     Dates: start: 20121226, end: 20130613
  2. NEXIUM [Concomitant]
  3. Q-VAR [Concomitant]
  4. COMBIVENT INHALER [Concomitant]
  5. NEURONTIN [Concomitant]
  6. HCTZ [Concomitant]
  7. LAXATIVES [Concomitant]
  8. TYLENOL [Concomitant]

REACTIONS (4)
  - Pain in extremity [None]
  - Pain in extremity [None]
  - Gait disturbance [None]
  - Wrong technique in drug usage process [None]
